FAERS Safety Report 13006041 (Version 1)
Quarter: 2016Q4

REPORT INFORMATION
  Report Type: Spontaneous
  Country: US (occurrence: US)
  Receive Date: 20161206
  Receipt Date: 20161206
  Transmission Date: 20170207
  Serious: No
  Sender: FDA-Public Use
  Company Number: None

PATIENT
  Age: 27 Year
  Sex: Female
  Weight: 81 kg

DRUGS (4)
  1. PHENTERMINE. [Concomitant]
     Active Substance: PHENTERMINE
  2. EFFEXOR [Concomitant]
     Active Substance: VENLAFAXINE HYDROCHLORIDE
  3. MEDROL [Suspect]
     Active Substance: METHYLPREDNISOLONE
     Indication: MIGRAINE
     Dosage: ?          QUANTITY:21 TABLET(S);?
     Route: 048
     Dates: start: 20161128, end: 20161203
  4. XANAX [Concomitant]
     Active Substance: ALPRAZOLAM

REACTIONS (7)
  - Chest pain [None]
  - Hypoaesthesia [None]
  - Tongue discomfort [None]
  - Hypoaesthesia oral [None]
  - Drug hypersensitivity [None]
  - Pharyngeal disorder [None]
  - Swollen tongue [None]

NARRATIVE: CASE EVENT DATE: 20161128
